FAERS Safety Report 4474551-8 (Version None)
Quarter: 2004Q4

REPORT INFORMATION
  Report Type: 
  Country: None (occurrence: None)
  Receive Date: 20041012
  Receipt Date: 20040930
  Transmission Date: 20050328
  Serious: Yes (Hospitalization)
  Sender: FDA-Public Use
  Company Number: FLUV00304000625

PATIENT
  Age: 9 Year
  Sex: Male
  Weight: 38 kg

DRUGS (11)
  1. LUVOX [Suspect]
     Indication: ANXIETY
     Dosage: 75 MILLIGRAM(S) DAILY ORAL
     Route: 048
     Dates: start: 20031021, end: 20040203
  2. LUVOX [Suspect]
     Indication: COMPULSIONS
     Dosage: 75 MILLIGRAM(S) DAILY ORAL
     Route: 048
     Dates: start: 20031021, end: 20040203
  3. LUVOX [Suspect]
     Indication: OBSESSIVE THOUGHTS
     Dosage: 75 MILLIGRAM(S) DAILY ORAL
     Route: 048
     Dates: start: 20031021, end: 20040203
  4. ALPRAZOLAM [Suspect]
     Indication: ANXIETY
     Dosage: 0.8 MILLIGRAM(S), DAILY ORAL
     Route: 048
     Dates: start: 20031018, end: 20040203
  5. ALPRAZOLAM [Suspect]
     Indication: COMPULSIONS
     Dosage: 0.8 MILLIGRAM(S), DAILY ORAL
     Route: 048
     Dates: start: 20031018, end: 20040203
  6. ALPRAZOLAM [Suspect]
     Indication: OBSESSIVE THOUGHTS
     Dosage: 0.8 MILLIGRAM(S), DAILY ORAL
     Route: 048
     Dates: start: 20031018, end: 20040203
  7. HALOPERIDOL [Suspect]
     Indication: ANXIETY
     Dosage: 3 MILLIGRAM(S), DAILY ORAL
     Route: 048
     Dates: start: 20031018, end: 20040203
  8. HALOPERIDOL [Suspect]
     Indication: INTERMITTENT EXPLOSIVE DISORDER
     Dosage: 3 MILLIGRAM(S), DAILY ORAL
     Route: 048
     Dates: start: 20031018, end: 20040203
  9. NEULEPTIL (PERICIAZINE) [Suspect]
     Indication: INTERMITTENT EXPLOSIVE DISORDER
     Dosage: 5 MILLIGRAM(S) DAILY ORAL
     Route: 048
     Dates: start: 20040127, end: 20040203
  10. TEGRETOL [Suspect]
     Indication: EXCITABILITY
     Dosage: 20 MILLIGRAM(S) DAILY ORAL
     Route: 048
     Dates: start: 20040106, end: 20040201
  11. TEGRETOL [Suspect]
     Indication: INTERMITTENT EXPLOSIVE DISORDER
     Dosage: 20 MILLIGRAM(S) DAILY ORAL
     Route: 048
     Dates: start: 20040106, end: 20040201

REACTIONS (12)
  - ALANINE AMINOTRANSFERASE INCREASED [None]
  - ASPARTATE AMINOTRANSFERASE INCREASED [None]
  - BLOOD ALKALINE PHOSPHATASE INCREASED [None]
  - BLOOD LACTATE DEHYDROGENASE INCREASED [None]
  - DRUG ERUPTION [None]
  - EOSINOPHIL COUNT INCREASED [None]
  - GAMMA-GLUTAMYLTRANSFERASE INCREASED [None]
  - HYPERSENSITIVITY [None]
  - LYMPHOCYTE COUNT INCREASED [None]
  - LYMPHOCYTE STIMULATION TEST POSITIVE [None]
  - PYREXIA [None]
  - SKIN HYPERPIGMENTATION [None]
